FAERS Safety Report 17680617 (Version 1)
Quarter: 2020Q2

REPORT INFORMATION
  Report Type: Spontaneous
  Country: GB (occurrence: GB)
  Receive Date: 20200417
  Receipt Date: 20200417
  Transmission Date: 20200714
  Serious: Yes (Other)
  Sender: FDA-Public Use
  Company Number: GB-MYLANLABS-2020M1038932

PATIENT
  Age: 67 Year
  Sex: Male
  Weight: 97.97 kg

DRUGS (2)
  1. EFUDIX [Suspect]
     Active Substance: FLUOROURACIL
     Indication: HYPERKERATOSIS
     Dosage: 1 DOSAGE FORM, QD (APPLIED ALL OVER FACE)
     Route: 061
     Dates: start: 20200306, end: 20200310
  2. ATORVASTATIN [Concomitant]
     Active Substance: ATORVASTATIN
     Dosage: UNK

REACTIONS (1)
  - Swelling face [Recovering/Resolving]

NARRATIVE: CASE EVENT DATE: 20200307
